FAERS Safety Report 7570349-2 (Version None)
Quarter: 2011Q2

REPORT INFORMATION
  Report Type: 
  Country: None (occurrence: None)
  Receive Date: 20110624
  Receipt Date: 20110609
  Transmission Date: 20111010
  Serious: Yes (Death)
  Sender: FDA-Public Use
  Company Number: NG-WATSON-2011-09175

PATIENT

DRUGS (2)
  1. CAPTOPRIL [Suspect]
     Indication: RENAL FAILURE ACUTE
  2. FUROSEMIDE [Suspect]

REACTIONS (1)
  - CARDIORENAL SYNDROME [None]
